FAERS Safety Report 23462383 (Version 1)
Quarter: 2024Q1

REPORT INFORMATION
  Report Type: Spontaneous
  Country: CH (occurrence: CH)
  Receive Date: 20240131
  Receipt Date: 20240131
  Transmission Date: 20240409
  Serious: Yes (Other)
  Sender: FDA-Public Use
  Company Number: None

PATIENT
  Age: 66 Year
  Sex: Female

DRUGS (3)
  1. REMERON [Suspect]
     Active Substance: MIRTAZAPINE
     Indication: Depression
     Dosage: 15 MILLIGRAM, QD
     Dates: start: 2021, end: 20231126
  2. CLOTHIAPINE [Suspect]
     Active Substance: CLOTHIAPINE
     Dosage: 40 MILLIGRAM, QD
     Dates: start: 202305, end: 20231126
  3. BETAHISTINE [Suspect]
     Active Substance: BETAHISTINE
     Indication: Dizziness
     Dosage: 8 MILLIGRAM, Q8H
     Dates: start: 20231120, end: 20231127

REACTIONS (2)
  - Psychomotor retardation [Not Recovered/Not Resolved]
  - Parkinsonism [Not Recovered/Not Resolved]

NARRATIVE: CASE EVENT DATE: 20231101
